FAERS Safety Report 4309896-5 (Version None)
Quarter: 2004Q1

REPORT INFORMATION
  Report Type: 
  Country: None (occurrence: None)
  Receive Date: 20040303
  Receipt Date: 20040120
  Transmission Date: 20041129
  Serious: Yes (Hospitalization)
  Sender: FDA-Public Use
  Company Number: US-BRISTOL-MYERS SQUIBB COMPANY-12480919

PATIENT
  Age: 19 Year
  Sex: Female
  Weight: 73 kg

DRUGS (7)
  1. ABILIFY [Suspect]
     Indication: SCHIZOPHRENIA, PARANOID TYPE
     Dosage: INITIATED IN APR-2003, INCREASED TO 30 MG/DAY IN NOV-2003.
     Route: 048
     Dates: start: 20031101
  2. TEGRETOL [Concomitant]
  3. ZOLOFT [Concomitant]
  4. XANAX [Concomitant]
  5. BUSPAR [Concomitant]
  6. VICODIN [Concomitant]
  7. ATARAX [Concomitant]

REACTIONS (5)
  - DIZZINESS [None]
  - DIZZINESS POSTURAL [None]
  - MALAISE [None]
  - VISION BLURRED [None]
  - WEIGHT DECREASED [None]
